FAERS Safety Report 8081634-2 (Version None)
Quarter: 2012Q1

REPORT INFORMATION
  Report Type: 
  Country: None (occurrence: None)
  Receive Date: 20120130
  Receipt Date: 20120124
  Transmission Date: 20120608
  Serious: Yes (Other)
  Sender: FDA-Public Use
  Company Number: US-PFIZER INC-2011232706

PATIENT
  Sex: Male
  Weight: 95.2 kg

DRUGS (3)
  1. DOXYCYCLINE [Concomitant]
     Indication: STAPHYLOCOCCAL INFECTION
     Dosage: UNK
  2. LYRICA [Suspect]
     Dosage: 2 CAPSULES AT 75 MG DAILY
     Route: 048
     Dates: start: 20120121
  3. LYRICA [Suspect]
     Indication: NERVOUS SYSTEM DISORDER
     Dosage: 4 CAPSULES OF 75 MG DAILY

REACTIONS (2)
  - JOINT RANGE OF MOTION DECREASED [None]
  - ARTHRITIS [None]
